FAERS Safety Report 8167484 (Version 6)
Quarter: 2012Q4

REPORT INFORMATION
  Report Type: Report from Study
  Country: DE (occurrence: DE)
  Receive Date: 20111004
  Receipt Date: 20121226
  Transmission Date: 20130627
  Serious: Yes (Hospitalization, Other)
  Sender: FDA-Public Use
  Company Number: DE-UCBSA-042205

PATIENT
  Age: 75 Year
  Sex: Female
  Weight: 55 kg

DRUGS (15)
  1. CIMZIA [Suspect]
     Indication: RHEUMATOID ARTHRITIS
     Route: 058
     Dates: start: 200903, end: 201107
  2. NITRENDIPINE [Concomitant]
     Dosage: 20 MG;  0-0-1
  3. PREDNISOLONE [Concomitant]
     Dosage: 5 MG, 1-0-0
  4. FERROSANOL [Concomitant]
  5. CARVEDILOL [Concomitant]
     Dosage: 12.5 MG 1-0-0
  6. RAMIPRIL [Concomitant]
     Dosage: 5 MG 1-0-1
  7. TORASEMIDE [Concomitant]
     Dosage: 10 MG 1-0-0
  8. ARAVA [Concomitant]
     Dosage: 10 MG, 1-0-0
  9. KATADOLON [Concomitant]
     Dosage: 100 MG, 1-0-1
  10. PANTOZOL [Concomitant]
     Dosage: 20 MG,
  11. SAROTEN [Concomitant]
     Dosage: 25 MG, 0-0-0-1
  12. ZOLPIDEM [Concomitant]
     Dosage: 10 MG, 0-0-1
  13. ALENDRONIC ACID [Concomitant]
  14. CALCIUM D3 [Concomitant]
  15. LEFLUNOMIDE [Concomitant]
     Dosage: DOSE: 10 MG PER DAY
     Dates: start: 200709

REACTIONS (1)
  - Pulmonary tuberculosis [Recovered/Resolved with Sequelae]
